FAERS Safety Report 5283785-4 (Version None)
Quarter: 2007Q1

REPORT INFORMATION
  Report Type: 
  Country: None (occurrence: None)
  Receive Date: 20061226
  Receipt Date: 20060220
  Transmission Date: 20070707
  Serious: Yes (Other)
  Sender: FDA-Public Use
  Company Number: 2006S1000042

PATIENT
  Age: 47 Year
  Sex: Female
  Weight: 78.0187 kg

DRUGS (3)
  1. ACITRETIN [Suspect]
     Indication: PSORIASIS
     Dosage: 25 MG; QD; PO
     Route: 048
     Dates: start: 20060102, end: 20060207
  2. ENALAPRIL MALEATE [Concomitant]
  3. HYDROCHLOROTHIAZIDE [Concomitant]

REACTIONS (5)
  - DERMATITIS BULLOUS [None]
  - HAIR TEXTURE ABNORMAL [None]
  - STICKY SKIN [None]
  - TRANSAMINASES INCREASED [None]
  - WEIGHT INCREASED [None]
